FAERS Safety Report 4524807-5 (Version None)
Quarter: 2004Q4

REPORT INFORMATION
  Report Type: 
  Country: None (occurrence: None)
  Receive Date: 20041208
  Receipt Date: 20041202
  Transmission Date: 20050328
  Serious: Yes (Death, Hospitalization)
  Sender: FDA-Public Use
  Company Number: 163-20785-04110123

PATIENT
  Age: 84 Year
  Sex: Male

DRUGS (1)
  1. THALOMID (THALIDOMIDE) (50 MILLIGRAM, CAPSULES) [Suspect]
     Indication: MYELODYSPLASTIC SYNDROME
     Dosage: 100 MG, AT BEDTIME, ORAL
     Route: 048
     Dates: start: 20040701, end: 20040901

REACTIONS (1)
  - HAEMORRHAGE [None]
